FAERS Safety Report 8976522 (Version 1)
Quarter: 2012Q4

REPORT INFORMATION
  Report Type: Report from Study
  Country: GB (occurrence: GB)
  Receive Date: 20121220
  Receipt Date: 20121220
  Transmission Date: 20130627
  Serious: Yes (Other)
  Sender: FDA-Public Use
  Company Number: GB-JNJFOC-20121208246

PATIENT
  Age: 71 Year
  Sex: Male

DRUGS (10)
  1. REMICADE [Suspect]
     Indication: RHEUMATOID ARTHRITIS
     Route: 042
     Dates: start: 20100128
  2. REMICADE [Suspect]
     Indication: RHEUMATOID ARTHRITIS
     Route: 042
     Dates: start: 20030605
  3. METHOTREXATE [Concomitant]
     Indication: RHEUMATOID ARTHRITIS
  4. ASPIRIN [Concomitant]
  5. BISOPROLOL [Concomitant]
  6. RAMIPRIL [Concomitant]
  7. SIMVASTATIN [Concomitant]
  8. FOLIC ACID [Concomitant]
  9. TRAMADOL [Concomitant]
  10. PARACETAMOL [Concomitant]

REACTIONS (1)
  - Chronic lymphocytic leukaemia stage 0 [Recovered/Resolved with Sequelae]
